FAERS Safety Report 4620853-1 (Version None)
Quarter: 2005Q1

REPORT INFORMATION
  Report Type: 
  Country: None (occurrence: None)
  Receive Date: 20050325
  Receipt Date: 20050309
  Transmission Date: 20050727
  Serious: Yes (Hospitalization)
  Sender: FDA-Public Use
  Company Number: 2005BI005458

PATIENT
  Age: 63 Year
  Sex: Male
  Weight: 99.7913 kg

DRUGS (1)
  1. NATALIZUMAB [Suspect]
     Indication: MULTIPLE SCLEROSIS
     Dosage: 300 MG;QW;IV
     Route: 042
     Dates: start: 20041201, end: 20050201

REACTIONS (3)
  - ASTHENIA [None]
  - BLOOD GLUCOSE INCREASED [None]
  - INFUSION RELATED REACTION [None]
